FAERS Safety Report 4423595-0 (Version None)
Quarter: 2004Q3

REPORT INFORMATION
  Report Type: 
  Country: None (occurrence: None)
  Receive Date: 20040714
  Receipt Date: 20031208
  Transmission Date: 20050211
  Serious: Yes (Hospitalization)
  Sender: FDA-Public Use
  Company Number: 200320156US

PATIENT
  Age: 31 Year
  Sex: Female

DRUGS (3)
  1. TAXOTERE [Suspect]
     Indication: OVARIAN CANCER
     Dosage: QW
  2. TAXOTERE [Suspect]
     Indication: OVARIAN CANCER
     Dates: start: 20031125
  3. GEMCITABINE HYDROCHLORIDE (GEMZAR) [Suspect]
     Indication: OVARIAN CANCER
     Dosage: QW

REACTIONS (5)
  - CARDIAC TAMPONADE [None]
  - INFLAMMATION [None]
  - LUNG INFILTRATION [None]
  - PERICARDIAL DISEASE [None]
  - PLEURAL EFFUSION [None]
